FAERS Safety Report 9669716 (Version 2)
Quarter: 2014Q1

REPORT INFORMATION
  Report Type: Spontaneous
  Country: CA (occurrence: CA)
  Receive Date: 20131105
  Receipt Date: 20140205
  Transmission Date: 20141002
  Serious: No
  Sender: FDA-Public Use
  Company Number: CA-ELI_LILLY_AND_COMPANY-CA201310007356

PATIENT
  Age: 36 Year
  Sex: Female
  Weight: 99.77 kg

DRUGS (5)
  1. PROZAC [Suspect]
     Indication: DEPRESSION
     Dosage: 20 MG, QD
     Route: 065
     Dates: start: 201302
  2. CRINONE [Suspect]
     Indication: PRODUCT USED FOR UNKNOWN INDICATION
     Dosage: 1 DF, UNKNOWN
     Route: 065
     Dates: start: 201305
  3. ESTRACE [Suspect]
     Indication: PRODUCT USED FOR UNKNOWN INDICATION
     Dosage: 2 MG, TID
     Route: 065
     Dates: start: 201305
  4. REMICADE [Suspect]
     Indication: COLITIS ULCERATIVE
     Dosage: 500 MG, OTHER
     Route: 042
  5. PREGVIT [Concomitant]
     Indication: PREGNANCY
     Dosage: 1 DF, UNKNOWN

REACTIONS (2)
  - Weight decreased [Unknown]
  - Exposure during pregnancy [Unknown]
